FAERS Safety Report 14527001 (Version 1)
Quarter: 2018Q1

REPORT INFORMATION
  Report Type: Spontaneous
  Country: US (occurrence: US)
  Receive Date: 20180212
  Receipt Date: 20180212
  Transmission Date: 20180509
  Serious: Yes (Other)
  Sender: FDA-Public Use
  Company Number: None

PATIENT
  Age: 23 Month
  Sex: Male
  Weight: 12.6 kg

DRUGS (1)
  1. OSELTAMIVIR PHOSPHATE. [Suspect]
     Active Substance: OSELTAMIVIR PHOSPHATE
     Indication: INFLUENZA
     Route: 048
     Dates: start: 20180207, end: 20180207

REACTIONS (10)
  - Pyrexia [None]
  - Restlessness [None]
  - Blood sodium decreased [None]
  - Hallucination [None]
  - Vomiting [None]
  - Insomnia [None]
  - Incoherent [None]
  - Dehydration [None]
  - Flushing [None]
  - Irritability [None]

NARRATIVE: CASE EVENT DATE: 20180207
